FAERS Safety Report 8941491 (Version 1)
Quarter: 2012Q4

REPORT INFORMATION
  Report Type: Report from Study
  Country: US (occurrence: US)
  Receive Date: 20121203
  Receipt Date: 20121203
  Transmission Date: 20130627
  Serious: Yes (Other)
  Sender: FDA-Public Use
  Company Number: US-JNJFOC-20121113973

PATIENT
  Age: 77 None
  Sex: Male
  Weight: 102.06 kg

DRUGS (10)
  1. XARELTO [Suspect]
     Indication: CEREBROVASCULAR ACCIDENT PROPHYLAXIS
     Dosage: Pt had not picked up this prescription from pharmacy
     Route: 048
  2. XARELTO [Suspect]
     Indication: CEREBROVASCULAR ACCIDENT PROPHYLAXIS
     Route: 048
     Dates: start: 201211
  3. XARELTO [Suspect]
     Indication: ATRIAL FIBRILLATION
     Dosage: Pt had not picked up this prescription from pharmacy
     Route: 048
  4. XARELTO [Suspect]
     Indication: ATRIAL FIBRILLATION
     Route: 048
     Dates: start: 201211
  5. BENICAR [Concomitant]
     Indication: BLOOD PRESSURE
     Route: 048
  6. TEKTURNA [Concomitant]
     Indication: BLOOD PRESSURE
     Dosage: 150mg-25mg/once daily/oral
     Route: 048
  7. DIGOXIN [Concomitant]
     Indication: BLOOD PRESSURE
     Route: 048
  8. LEVOTHYROXINE [Concomitant]
     Indication: THYROID DISORDER
     Route: 048
  9. PRAVASTATIN [Concomitant]
     Indication: BLOOD CHOLESTEROL
     Route: 048
  10. KLOR-CON [Concomitant]
     Indication: MINERAL SUPPLEMENTATION
     Route: 048

REACTIONS (5)
  - Haemorrhage [Recovered/Resolved]
  - Contusion [Not Recovered/Not Resolved]
  - Oedema peripheral [Not Recovered/Not Resolved]
  - Pain in extremity [Not Recovered/Not Resolved]
  - Hypoaesthesia [Not Recovered/Not Resolved]
